FAERS Safety Report 8829761 (Version 1)
Quarter: 2012Q4

REPORT INFORMATION
  Report Type: Spontaneous
  Country: US (occurrence: None)
  Receive Date: 20121005
  Receipt Date: 20121005
  Transmission Date: 20130627
  Serious: Yes (Hospitalization)
  Sender: FDA-Public Use
  Company Number: None

PATIENT
  Age: 71 Year
  Sex: Female
  Weight: 55.33 kg

DRUGS (9)
  1. INVANZ [Suspect]
     Indication: PYELONEPHRITIS
     Dosage: 1,000 mg Q24M Intravenously
     Route: 042
     Dates: start: 20120915
  2. INVANZ [Suspect]
     Indication: UTI
     Dosage: 1,000 mg Q24M Intravenously
     Route: 042
     Dates: start: 20120915
  3. INVANZ [Suspect]
     Indication: PYELONEPHRITIS
     Dates: start: 20120916
  4. INVANZ [Suspect]
     Indication: UTI
     Dates: start: 20120916
  5. INVANZ [Suspect]
     Indication: PYELONEPHRITIS
     Dates: start: 20120917
  6. INVANZ [Suspect]
     Indication: UTI
     Dates: start: 20120917
  7. BENADRYL [Concomitant]
  8. FAMOTIDINE [Concomitant]
  9. SODIUM CHLORIDE [Concomitant]

REACTIONS (1)
  - Hypersensitivity [None]
